FAERS Safety Report 7585805-0 (Version None)
Quarter: 2011Q3

REPORT INFORMATION
  Report Type: 
  Country: None (occurrence: None)
  Receive Date: 20110701
  Receipt Date: 20110629
  Transmission Date: 20111222
  Serious: Yes (Hospitalization)
  Sender: FDA-Public Use
  Company Number: US-BRISTOL-MYERS SQUIBB COMPANY-15193618

PATIENT
  Age: 26 Year
  Sex: Female

DRUGS (14)
  1. CALCIUM + VITAMIN D [Concomitant]
     Dates: start: 20100501
  2. VITAMIN B COMPLEX CAP [Concomitant]
     Dates: start: 20100407
  3. COMBIVIR [Suspect]
     Indication: HIV INFECTION
     Dates: start: 20091014, end: 20100108
  4. NORVIR [Suspect]
     Indication: HIV INFECTION
     Dates: start: 20091014, end: 20100108
  5. ADCO-DOL [Concomitant]
     Indication: ANALGESIC THERAPY
     Dates: start: 20100317, end: 20100501
  6. TRUVADA [Suspect]
     Indication: HIV INFECTION
     Dates: start: 20100108
  7. EMTRICITABINE [Suspect]
     Indication: HIV INFECTION
  8. MULTI-VITAMIN [Concomitant]
     Dates: start: 20100108
  9. REYATAZ [Suspect]
     Indication: HIV INFECTION
     Dates: start: 20091014, end: 20100108
  10. VIREAD [Suspect]
     Indication: HIV INFECTION
  11. PANADO [Concomitant]
     Indication: HEADACHE
     Dates: start: 20091112
  12. ASCORBIC ACID [Concomitant]
     Dates: start: 20100501
  13. SCOPOLAMINE [Concomitant]
     Indication: DIARRHOEA
     Dates: start: 20100511, end: 20100501
  14. SCOPOLAMINE [Concomitant]
     Indication: GASTROENTERITIS
     Dates: start: 20100511, end: 20100501

REACTIONS (2)
  - ANXIETY [None]
  - VOMITING [None]
